FAERS Safety Report 8523320-8 (Version None)
Quarter: 2012Q3

REPORT INFORMATION
  Report Type: 
  Country: None (occurrence: None)
  Receive Date: 20120720
  Receipt Date: 20120203
  Transmission Date: 20120928
  Serious: Yes (Hospitalization)
  Sender: FDA-Public Use
  Company Number: GR-JNJFOC-20120708289

PATIENT
  Age: 80 Year
  Sex: Female

DRUGS (3)
  1. SIMPONI [Suspect]
     Indication: RHEUMATOID ARTHRITIS
     Route: 058
     Dates: start: 20111017
  2. METHOTREXATE [Concomitant]
     Indication: RHEUMATOID ARTHRITIS
     Route: 065
     Dates: start: 20101201
  3. SIMPONI [Suspect]
     Dosage: 4TH DOSE
     Route: 058
     Dates: start: 20120117, end: 20120117

REACTIONS (2)
  - PANCYTOPENIA [None]
  - FUNGAL INFECTION [None]
